FAERS Safety Report 23287744 (Version 2)
Quarter: 2023Q4

REPORT INFORMATION
  Report Type: Spontaneous
  Country: US (occurrence: US)
  Receive Date: 20231212
  Receipt Date: 20231220
  Transmission Date: 20240109
  Serious: Yes (Death, Other)
  Sender: FDA-Public Use
  Company Number: US-JNJFOC-20231212146

PATIENT

DRUGS (2)
  1. IMBRUVICA [Suspect]
     Active Substance: IBRUTINIB
     Indication: Chronic lymphocytic leukaemia
     Route: 048
  2. VENETOCLAX [Suspect]
     Active Substance: VENETOCLAX
     Indication: Chronic lymphocytic leukaemia
     Route: 048

REACTIONS (8)
  - Sudden death [Fatal]
  - Acute kidney injury [Unknown]
  - Basal cell carcinoma [Unknown]
  - Infection [Unknown]
  - Colorectal cancer [Unknown]
  - COVID-19 [Fatal]
  - Tumour lysis syndrome [Unknown]
  - Cardiovascular disorder [Unknown]
